FAERS Safety Report 4690903-5 (Version None)
Quarter: 2005Q2

REPORT INFORMATION
  Report Type: 
  Country: None (occurrence: None)
  Receive Date: 20050615
  Receipt Date: 20050119
  Transmission Date: 20051028
  Serious: Yes (Death, Hospitalization, Other)
  Sender: FDA-Public Use
  Company Number: PHRM2005FR00583

PATIENT
  Age: 74 Year
  Sex: Female
  Weight: 43 kg

DRUGS (3)
  1. ALKERAN [Concomitant]
     Indication: MULTIPLE MYELOMA
     Dosage: 4 DF 4 DAYS/MONTH
     Route: 048
     Dates: start: 20020701, end: 20030415
  2. ZOMETA [Suspect]
     Indication: MULTIPLE MYELOMA
     Dosage: 4 MG, QMO
     Route: 042
     Dates: start: 20020701, end: 20040715
  3. CORTANCYL [Concomitant]
     Dosage: 300 MG PER MONTH
     Route: 048
     Dates: start: 20020701, end: 20030415

REACTIONS (4)
  - ACUTE PULMONARY OEDEMA [None]
  - CARDIAC FAILURE [None]
  - INFECTION [None]
  - OSTEONECROSIS [None]
